FAERS Safety Report 8521675-1 (Version None)
Quarter: 2012Q3

REPORT INFORMATION
  Report Type: 
  Country: None (occurrence: None)
  Receive Date: 20120719
  Receipt Date: 20120718
  Transmission Date: 20120928
  Serious: Yes (Other)
  Sender: FDA-Public Use
  Company Number: PHHY2012BR053323

PATIENT
  Sex: Male

DRUGS (2)
  1. AMLODOPINE BESYLATE AND VALSARTAN [Suspect]
     Dosage: 1 DF (VALS 160 MG, AMLO 5 MG), DAILY
     Route: 048
  2. AMLODOPINE BESYLATE AND VALSARTAN [Suspect]
     Indication: HYPERTENSION
     Dosage: 1 DF (VALS 320 MG AND AMLO 5 MG), DAILY
     Route: 048

REACTIONS (2)
  - SCIATICA [None]
  - BLOOD PRESSURE INCREASED [None]
